FAERS Safety Report 5419656-X (Version None)
Quarter: 2007Q3

REPORT INFORMATION
  Report Type: 
  Country: None (occurrence: None)
  Receive Date: 20070820
  Receipt Date: 20070808
  Transmission Date: 20080115
  Serious: Yes (Death)
  Sender: FDA-Public Use
  Company Number: JP-MERCK-0708USA02135

PATIENT
  Age: 95 Year
  Sex: Female
  Weight: 29 kg

DRUGS (10)
  1. STROMECTOL [Suspect]
     Indication: ACARODERMATITIS
     Route: 048
     Dates: start: 20070705, end: 20070705
  2. STROMECTOL [Suspect]
     Route: 048
     Dates: start: 20070712, end: 20070712
  3. STROMECTOL [Suspect]
     Route: 048
     Dates: start: 20070719, end: 20070719
  4. STROMECTOL [Suspect]
     Route: 048
     Dates: start: 20070301, end: 20070301
  5. GAMMA BENZENE HEXACHLORIDE [Suspect]
     Indication: ACARODERMATITIS
     Route: 061
     Dates: start: 20070714, end: 20070714
  6. GAMMA BENZENE HEXACHLORIDE [Suspect]
     Route: 061
     Dates: start: 20070707, end: 20070707
  7. URSO 250 [Concomitant]
     Indication: CHOLECYSTITIS
     Route: 048
     Dates: start: 20061109
  8. CAPTOPRIL [Concomitant]
     Indication: HYPERTENSION
     Route: 048
     Dates: start: 20061109
  9. PANTOSIN [Concomitant]
     Route: 048
     Dates: start: 20061109
  10. MAGNESIUM OXIDE [Concomitant]
     Route: 048
     Dates: start: 20061109

REACTIONS (2)
  - HEPATIC FUNCTION ABNORMAL [None]
  - PYREXIA [None]
